FAERS Safety Report 6120824-2 (Version None)
Quarter: 2009Q1

REPORT INFORMATION
  Report Type: 
  Country: None (occurrence: None)
  Receive Date: 20090317
  Receipt Date: 20090309
  Transmission Date: 20090719
  Serious: Yes (Hospitalization)
  Sender: FDA-Public Use
  Company Number: DE-ABBOTT-09P-062-0561835-00

PATIENT
  Age: 73 Year
  Sex: Male
  Weight: 70 kg

DRUGS (12)
  1. KLACID TABLETS [Suspect]
     Indication: GASTRITIS EROSIVE
     Route: 048
     Dates: start: 20081217, end: 20081223
  2. KLACID TABLETS [Suspect]
     Indication: HELICOBACTER INFECTION
  3. PANTOZOL [Suspect]
     Indication: GASTRITIS EROSIVE
     Route: 048
     Dates: start: 20081217, end: 20081223
  4. PANTOZOL [Suspect]
     Indication: HELICOBACTER INFECTION
  5. AMOXIHEXAL [Suspect]
     Indication: GASTRITIS EROSIVE
     Route: 048
     Dates: start: 20081217, end: 20081223
  6. AMOXIHEXAL [Suspect]
     Indication: HELICOBACTER INFECTION
  7. ACTRAPHANE [Concomitant]
     Indication: TYPE 2 DIABETES MELLITUS
     Route: 058
  8. ALLOPURINOL [Concomitant]
     Indication: HYPERURICAEMIA
     Route: 048
  9. ATACAND [Concomitant]
     Indication: HYPERTENSION
     Route: 048
  10. BISOPROLOL [Concomitant]
     Indication: HYPERTENSION
     Route: 048
  11. DELIX [Concomitant]
     Indication: HYPERTENSION
     Route: 048
  12. NITRENDIPINE [Concomitant]
     Indication: HYPERTENSION
     Route: 048

REACTIONS (2)
  - DERMATITIS ALLERGIC [None]
  - DRUG HYPERSENSITIVITY [None]
